FAERS Safety Report 10342336 (Version 1)
Quarter: 2014Q3

REPORT INFORMATION
  Report Type: Spontaneous
  Country: US (occurrence: US)
  Receive Date: 20140725
  Receipt Date: 20140725
  Transmission Date: 20150326
  Serious: No
  Sender: FDA-Public Use
  Company Number: US-GLAXOSMITHKLINE-A1034607A

PATIENT
  Age: 62 Year
  Sex: Female

DRUGS (7)
  1. LAMOTRIGINE. [Suspect]
     Active Substance: LAMOTRIGINE
     Indication: BIPOLAR DISORDER
     Route: 048
     Dates: start: 2010, end: 2010
  2. LAMICTAL [Suspect]
     Active Substance: LAMOTRIGINE
     Indication: BIPOLAR DISORDER
     Route: 048
     Dates: start: 2005, end: 201304
  3. CYMBALTA [Concomitant]
     Active Substance: DULOXETINE HYDROCHLORIDE
  4. TEGRETOL [Suspect]
     Active Substance: CARBAMAZEPINE
     Route: 065
  5. TRILEPTAL [Concomitant]
     Active Substance: OXCARBAZEPINE
  6. CLONAZEPAM. [Concomitant]
     Active Substance: CLONAZEPAM
  7. AMITRIPTYLINE [Concomitant]
     Active Substance: AMITRIPTYLINE

REACTIONS (17)
  - Drug interaction [Not Recovered/Not Resolved]
  - Headache [Unknown]
  - Rhinorrhoea [Unknown]
  - Swelling face [Not Recovered/Not Resolved]
  - Malaise [Recovered/Resolved]
  - Saliva altered [Unknown]
  - Medication residue present [Unknown]
  - Oral discomfort [Unknown]
  - Facial pain [Not Recovered/Not Resolved]
  - Nausea [Recovered/Resolved]
  - Diarrhoea [Unknown]
  - Stomatitis [Unknown]
  - Tooth disorder [Unknown]
  - Vomiting [Recovered/Resolved]
  - Gastrointestinal tract irritation [Unknown]
  - Tooth extraction [Unknown]
  - Lip swelling [Not Recovered/Not Resolved]

NARRATIVE: CASE EVENT DATE: 2010
